FAERS Safety Report 23256412 (Version 1)
Quarter: 2023Q4

REPORT INFORMATION
  Report Type: Spontaneous
  Country: FR (occurrence: FR)
  Receive Date: 20231204
  Receipt Date: 20231204
  Transmission Date: 20240110
  Serious: Yes (Life-Threatening, Other)
  Sender: FDA-Public Use
  Company Number: FR-AFSSAPS-AVPA2023000694

PATIENT
  Age: 35 Year
  Sex: Male

DRUGS (2)
  1. PREGABALIN [Suspect]
     Active Substance: PREGABALIN
     Indication: Product used for unknown indication
     Dosage: UNK NOT PRECISE
     Route: 065
  2. DEXPANTHENOL\DOMIPHEN BROMIDE\METHYL SALICYLATE\UREA [Suspect]
     Active Substance: DEXPANTHENOL\DOMIPHEN BROMIDE\METHYL SALICYLATE\UREA
     Indication: Product used for unknown indication
     Dosage: UNK NON PR?CIS?

REACTIONS (4)
  - Altered state of consciousness [Recovered/Resolved]
  - Miosis [Recovered/Resolved]
  - Victim of crime [Recovered/Resolved]
  - Drug abuse [Not Recovered/Not Resolved]

NARRATIVE: CASE EVENT DATE: 20230108
